FAERS Safety Report 14363468 (Version 1)
Quarter: 2018Q1

REPORT INFORMATION
  Report Type: Report from Study
  Country: US (occurrence: US)
  Receive Date: 20180108
  Receipt Date: 20180108
  Transmission Date: 20180509
  Serious: Yes (Hospitalization, Other)
  Sender: FDA-Public Use
  Company Number: US-JNJFOC-20171100556

PATIENT
  Sex: Female

DRUGS (1)
  1. STELARA [Suspect]
     Active Substance: USTEKINUMAB
     Indication: CROHN^S DISEASE
     Route: 042
     Dates: start: 20171030

REACTIONS (5)
  - Chills [Unknown]
  - Blood pressure decreased [Unknown]
  - Infusion related reaction [Unknown]
  - Post procedural pneumonia [Unknown]
  - Shoulder arthroplasty [Recovering/Resolving]

NARRATIVE: CASE EVENT DATE: 20171030
